FAERS Safety Report 5940686-3 (Version None)
Quarter: 2008Q4

REPORT INFORMATION
  Report Type: 
  Country: None (occurrence: None)
  Receive Date: 20081103
  Receipt Date: 20081103
  Transmission Date: 20090506
  Serious: Yes (Hospitalization)
  Sender: FDA-Public Use
  Company Number: None

PATIENT
  Sex: Male
  Weight: 78 kg

DRUGS (4)
  1. ERBITUX [Suspect]
     Dosage: 400 MG
  2. ELLENCE [Suspect]
     Dosage: 97.5 MG
  3. FLUOROURACIL [Suspect]
     Dosage: 5289.6 MG
  4. CISPLATIN [Suspect]
     Dosage: 117 MG

REACTIONS (7)
  - DRUG HYPERSENSITIVITY [None]
  - DYSPNOEA [None]
  - MALIGNANT NEOPLASM PROGRESSION [None]
  - NEUROPATHY PERIPHERAL [None]
  - OESOPHAGEAL ADENOCARCINOMA METASTATIC [None]
  - RASH [None]
  - RESPIRATORY FAILURE [None]
